FAERS Safety Report 8465370-6 (Version None)
Quarter: 2012Q2

REPORT INFORMATION
  Report Type: 
  Country: None (occurrence: None)
  Receive Date: 20120626
  Receipt Date: 20120613
  Transmission Date: 20120825
  Serious: Yes (Other)
  Sender: FDA-Public Use
  Company Number: JP-SANOFI-AVENTIS-2012SA044808

PATIENT
  Age: 65 Year
  Sex: Male

DRUGS (4)
  1. PACLITAXEL [Suspect]
     Route: 065
  2. DOCETAXEL [Suspect]
     Route: 065
  3. GEMCITABINE [Suspect]
     Dosage: TOTAL DOSE: 6000 MG, NUMBER OF ADMINISTRATION: 4
     Route: 065
  4. CARBOPLATIN [Concomitant]

REACTIONS (4)
  - PRODUCTIVE COUGH [None]
  - COUGH [None]
  - TRAUMATIC LUNG INJURY [None]
  - SURFACTANT PROTEIN INCREASED [None]
